FAERS Safety Report 12231245 (Version 2)
Quarter: 2016Q2

REPORT INFORMATION
  Report Type: Spontaneous
  Country: US (occurrence: US)
  Receive Date: 20160401
  Receipt Date: 20160516
  Transmission Date: 20160815
  Serious: Yes (Other)
  Sender: FDA-Public Use
  Company Number: CHPA2016US003079

PATIENT

DRUGS (3)
  1. KERI SHEA BUTTER [Suspect]
     Active Substance: SHEA BUTTER
     Indication: DRY SKIN PROPHYLAXIS
     Dosage: UNK, PRN
     Route: 061
     Dates: start: 20160229
  2. VASELINE INTENSIVE CARE [Concomitant]
     Indication: DRY SKIN
     Dosage: UNK
     Route: 065
  3. KERI ORIGINAL [Suspect]
     Active Substance: LANOLIN\MINERAL OIL
     Indication: DRY SKIN PROPHYLAXIS
     Dosage: UNK

REACTIONS (4)
  - Product quality issue [Unknown]
  - Drug ineffective [Unknown]
  - Road traffic accident [Unknown]
  - Product odour abnormal [Unknown]
